FAERS Safety Report 5051244-X (Version None)
Quarter: 2006Q3

REPORT INFORMATION
  Report Type: 
  Country: None (occurrence: None)
  Receive Date: 20060714
  Receipt Date: 20060705
  Transmission Date: 20061208
  Serious: Yes (Hospitalization)
  Sender: FDA-Public Use
  Company Number: PHBS2006JP10236

PATIENT
  Age: 24 Year
  Sex: Male

DRUGS (3)
  1. RITALIN [Suspect]
     Route: 048
  2. DOGMATYL [Concomitant]
  3. DEPAS [Concomitant]

REACTIONS (4)
  - CIRCULATORY COLLAPSE [None]
  - DEPRESSED LEVEL OF CONSCIOUSNESS [None]
  - DRUG SCREEN POSITIVE [None]
  - INJURY [None]
